FAERS Safety Report 19212602 (Version 1)
Quarter: 2021Q2

REPORT INFORMATION
  Report Type: Report from Study
  Country: US (occurrence: US)
  Receive Date: 20210504
  Receipt Date: 20210504
  Transmission Date: 20210717
  Serious: Yes (Other)
  Sender: FDA-Public Use
  Company Number: US-MYLANLABS-2021M1026387

PATIENT
  Sex: Female

DRUGS (4)
  1. INDOMETACIN [Suspect]
     Active Substance: INDOMETHACIN
     Indication: TRICUSPID VALVE DISEASE
  2. IBUPROFEN. [Suspect]
     Active Substance: IBUPROFEN
     Indication: EBSTEIN^S ANOMALY
     Dosage: INITIAL THERAPY
     Route: 065
  3. INDOMETACIN [Suspect]
     Active Substance: INDOMETHACIN
     Indication: EBSTEIN^S ANOMALY
     Dosage: MAINTENANCE THERAPY AT LOW?DOSE ; THRICE DAILY
     Route: 065
  4. IBUPROFEN. [Suspect]
     Active Substance: IBUPROFEN
     Indication: TRICUSPID VALVE DISEASE
     Dosage: MAINTENANCE THERAPY
     Route: 065

REACTIONS (2)
  - Oligohydramnios [Recovered/Resolved]
  - Maternal exposure during pregnancy [Recovered/Resolved]
